FAERS Safety Report 5580303-8 (Version None)
Quarter: 2007Q4

REPORT INFORMATION
  Report Type: 
  Country: None (occurrence: None)
  Receive Date: 20071130
  Receipt Date: 20070720
  Transmission Date: 20080405
  Serious: No
  Sender: FDA-Public Use
  Company Number: US200707000439

PATIENT
  Age: 62 Year
  Sex: Female

DRUGS (3)
  1. BYETTA [Suspect]
     Indication: TYPE 2 DIABETES MELLITUS
     Dosage: 5 UG, 2/D, 10 UG, 2/D SUBCUTANEOUS
     Route: 058
     Dates: start: 20061001, end: 20061101
  2. BYETTA [Suspect]
     Indication: TYPE 2 DIABETES MELLITUS
     Dosage: 5 UG, 2/D, 10 UG, 2/D SUBCUTANEOUS
     Route: 058
     Dates: start: 20061101
  3. METFORMIN HCL [Concomitant]

REACTIONS (5)
  - BLOOD GLUCOSE FLUCTUATION [None]
  - BURSITIS INFECTIVE [None]
  - GLYCOSYLATED HAEMOGLOBIN INCREASED [None]
  - SCRATCH [None]
  - URINARY TRACT INFECTION [None]
